FAERS Safety Report 7906735-8 (Version None)
Quarter: 2011Q4

REPORT INFORMATION
  Report Type: 
  Country: None (occurrence: None)
  Receive Date: 20111110
  Receipt Date: 20111103
  Transmission Date: 20120403
  Serious: Yes (Other)
  Sender: FDA-Public Use
  Company Number: US-UCBSA-043048

PATIENT
  Age: 36 Year
  Sex: Male
  Weight: 92.98 kg

DRUGS (5)
  1. CIMZIA [Suspect]
     Dosage: DOSE: UNKNOWN
     Route: 058
     Dates: start: 20110101
  2. DICYCLOMINE [Concomitant]
     Indication: GASTROINTESTINAL MOTILITY DISORDER
     Route: 048
  3. PROVENTIL [Concomitant]
     Indication: ALLERGY TO ANIMAL
     Route: 055
  4. CIMZIA [Suspect]
     Indication: CROHN'S DISEASE
     Dosage: 2 SHOTS; DOSE:400MG EVERY TWO WEEKS.
     Route: 058
     Dates: start: 20110801, end: 20110101
  5. BENADRYL [Concomitant]
     Indication: ALLERGY TO ANIMAL
     Dosage: AS NESSECARY
     Route: 048
     Dates: start: 20111005

REACTIONS (2)
  - INFLAMMATION [None]
  - DRY SKIN [None]
